FAERS Safety Report 11040444 (Version 2)
Quarter: 2015Q2

REPORT INFORMATION
  Report Type: Spontaneous
  Country: BR (occurrence: BR)
  Receive Date: 20150416
  Receipt Date: 20150520
  Transmission Date: 20150821
  Serious: Yes (Other)
  Sender: FDA-Public Use
  Company Number: BR-ASTRAZENECA-2015SE34625

PATIENT
  Age: 73 Year
  Sex: Female
  Weight: 71 kg

DRUGS (6)
  1. OTHER CONCOMITANT DRUGS [Concomitant]
  2. ASPIRINA PREVENT [Concomitant]
     Active Substance: ASPIRIN
  3. ATACAND HCT [Suspect]
     Active Substance: CANDESARTAN CILEXETIL\HYDROCHLOROTHIAZIDE
     Indication: HYPERTENSION
     Dosage: 16/12,5 MG TWO TIMES A DAY
     Route: 048
  4. SELOZOK [Suspect]
     Active Substance: METOPROLOL SUCCINATE
     Indication: HYPERTENSION
     Route: 048
  5. ROSUVASTATIN [Suspect]
     Active Substance: ROSUVASTATIN
     Indication: BLOOD CHOLESTEROL ABNORMAL
     Route: 048
  6. GASTROL [Concomitant]

REACTIONS (2)
  - Arterial occlusive disease [Recovering/Resolving]
  - Off label use [Not Recovered/Not Resolved]

NARRATIVE: CASE EVENT DATE: 2015
